FAERS Safety Report 5956557-2 (Version None)
Quarter: 2008Q4

REPORT INFORMATION
  Report Type: 
  Country: None (occurrence: None)
  Receive Date: 20081114
  Receipt Date: 20081114
  Transmission Date: 20090506
  Serious: Yes (Life-Threatening, Hospitalization)
  Sender: FDA-Public Use
  Company Number: None

PATIENT
  Sex: Female
  Weight: 56.6996 kg

DRUGS (1)
  1. ALBUTEROL [Suspect]
     Indication: ASTHMA
     Dosage: TWO INHALATIONS ONCE PO
     Route: 048
     Dates: start: 20080601, end: 20081101

REACTIONS (2)
  - COUGH [None]
  - DRUG INEFFECTIVE [None]
